FAERS Safety Report 11389471 (Version 1)
Quarter: 2015Q3

REPORT INFORMATION
  Report Type: Spontaneous
  Country: US (occurrence: US)
  Receive Date: 20150817
  Receipt Date: 20150817
  Transmission Date: 20151125
  Serious: Yes (Other)
  Sender: FDA-Public Use
  Company Number: US-CONCORDIA PHARMACEUTICALS INC.-CO-LA-US-2015-036

PATIENT
  Sex: Female

DRUGS (5)
  1. DIOVAN [Concomitant]
     Active Substance: VALSARTAN
     Route: 065
  2. LANOXIN [Suspect]
     Active Substance: DIGOXIN
     Route: 065
     Dates: start: 2008
  3. FUROSEMIDE. [Concomitant]
     Active Substance: FUROSEMIDE
     Route: 065
  4. CARDIS [Concomitant]
     Route: 065
  5. LANOXIN [Suspect]
     Active Substance: DIGOXIN
     Route: 065
     Dates: start: 2008

REACTIONS (7)
  - Feeling abnormal [Unknown]
  - Dysphagia [Unknown]
  - Headache [Recovered/Resolved]
  - Dysphonia [Unknown]
  - Rash generalised [Recovered/Resolved]
  - Swollen tongue [Unknown]
  - Pharyngeal oedema [Unknown]

NARRATIVE: CASE EVENT DATE: 20150802
